FAERS Safety Report 4431847-3 (Version None)
Quarter: 2004Q3

REPORT INFORMATION
  Report Type: 
  Country: None (occurrence: None)
  Receive Date: 20040818
  Receipt Date: 20040806
  Transmission Date: 20050211
  Serious: Yes (Life-Threatening, Hospitalization, Other)
  Sender: FDA-Public Use
  Company Number: 2004042713

PATIENT
  Age: 22 Year
  Sex: Female

DRUGS (2)
  1. VIRACEPT [Suspect]
     Indication: HIV INFECTION
     Dosage: 2500 MG (625 MG, 2 IN 1 D), ORAL
     Route: 048
     Dates: start: 20040603, end: 20040614
  2. ZIDOVUDINE W/LAMIVUDINE (LAMIVUDINE, ZIDOVUDINE) [Concomitant]

REACTIONS (4)
  - ANAPHYLACTOID REACTION [None]
  - BODY TEMPERATURE INCREASED [None]
  - HYPOTENSION [None]
  - STEVENS-JOHNSON SYNDROME [None]
